FAERS Safety Report 9058629 (Version 2)
Quarter: 2013Q1

REPORT INFORMATION
  Report Type: Spontaneous
  Country: IT (occurrence: IT)
  Receive Date: 20130211
  Receipt Date: 20130321
  Transmission Date: 20140127
  Serious: Yes (Hospitalization)
  Sender: FDA-Public Use
  Company Number: IT-NOVOPROD-370013

PATIENT
  Age: 45 Year
  Sex: Female

DRUGS (4)
  1. NOVORAPID FLEXPEN [Suspect]
     Indication: DIABETES MELLITUS
     Dosage: 100 U, UNK
     Route: 065
     Dates: start: 20130112
  2. ZOLPIDEM TARTATE [Concomitant]
     Indication: DEPRESSION
     Dosage: 140 MG, QD
     Route: 065
  3. CIPRALEX [Concomitant]
     Dosage: UNK
  4. DEPAKIN [Concomitant]
     Dosage: UNK

REACTIONS (2)
  - Drug abuse [Recovered/Resolved]
  - Hypoglycaemia [Recovered/Resolved]
